FAERS Safety Report 17924986 (Version 1)
Quarter: 2020Q2

REPORT INFORMATION
  Report Type: Spontaneous
  Country: DE (occurrence: DE)
  Receive Date: 20200622
  Receipt Date: 20200622
  Transmission Date: 20200714
  Serious: Yes (Life-Threatening, Hospitalization)
  Sender: FDA-Public Use
  Company Number: DE-TEVA-2020-DE-1789163

PATIENT
  Age: 68 Year
  Sex: Female

DRUGS (13)
  1. NOVOPULMON 400MIKROGRAMM NOVOLIZER [Concomitant]
     Dosage: 800 MICROGRAM DAILY; 400 MCG, 1-0-1-0, MDI
     Route: 055
  2. SODIUM BICARBONATE. [Concomitant]
     Active Substance: SODIUM BICARBONATE
     Dosage: 1 DOSAGE FORMS DAILY; NK MG, 1-0-0-0
     Route: 048
  3. LEVOTHYROXIN-NATRIUM [Concomitant]
     Active Substance: LEVOTHYROXINE SODIUM
     Dosage: 75 MICROGRAM DAILY; 1-0-0-0
     Route: 048
  4. PHENPROCOUMON [Suspect]
     Active Substance: PHENPROCOUMON
     Dosage: 3 MG, ACCORDING TO INR
     Route: 048
  5. NEBIVOLOL. [Concomitant]
     Active Substance: NEBIVOLOL
     Dosage: .5 DOSAGE FORMS DAILY; 5 MG, 0.5-0-0-0
     Route: 048
  6. DAXAS 500MIKROGRAMM [Concomitant]
     Dosage: 500 MICROGRAM DAILY; 0-0-1-0, MDI
     Route: 055
  7. SIMVASTATIN. [Suspect]
     Active Substance: SIMVASTATIN
     Dosage: 20 MILLIGRAM DAILY; 0-0-1-0
     Route: 048
  8. TORASEMID [Concomitant]
     Active Substance: TORSEMIDE
     Dosage: 10 MILLIGRAM DAILY; 1-0-0-0
     Route: 048
  9. ULTIBRO BREEZHALER 85MIKROGRAMM/43MIKROGRAMM [Concomitant]
     Dosage: 1 DOSAGE FORMS DAILY; 43 | 85 MCG, 1-0-0-0, MDI
     Route: 055
  10. EISENTABLETTEN ABZ 50MG [Concomitant]
     Dosage: 50 MILLIGRAM DAILY; 1-0-0-0
     Route: 048
  11. PANTOPRAZOL [Concomitant]
     Active Substance: PANTOPRAZOLE SODIUM
     Dosage: 40 MG / 2 DAYS, 0-0-1-0
     Route: 048
  12. CALCIVIT D 600MG/400I.E. [Concomitant]
     Dosage: 1 DOSAGE FORMS DAILY; 600|400 MG/IE, 0-0-1-0
     Route: 048
  13. QUETIAPIN [Concomitant]
     Active Substance: QUETIAPINE
     Dosage: 100 MILLIGRAM DAILY; 50 MG, 1-0-1-0
     Route: 048

REACTIONS (6)
  - General physical health deterioration [Unknown]
  - Pallor [Unknown]
  - Product prescribing error [Unknown]
  - Hypotension [Unknown]
  - Haematochezia [Unknown]
  - Anaemia [Unknown]
